FAERS Safety Report 8853821 (Version 1)
Quarter: 2012Q4

REPORT INFORMATION
  Report Type: 
  Country: CA (occurrence: CA)
  Receive Date: 20121022
  Receipt Date: 20121022
  Transmission Date: 20130627
  Serious: Yes (Other)
  Sender: FDA-Public Use
  Company Number: PHHY2012CA093929

PATIENT
  Sex: Male

DRUGS (1)
  1. PAMIDRONATE [Suspect]
     Indication: BREAST CANCER
     Route: 042

REACTIONS (2)
  - Chest pain [Unknown]
  - Pain [Unknown]
